FAERS Safety Report 9841957 (Version 1)
Quarter: 2013Q4

REPORT INFORMATION
  Report Type: Spontaneous
  Country: US (occurrence: None)
  Receive Date: 20131219
  Receipt Date: 20131219
  Transmission Date: 20140711
  Serious: Yes (Other)
  Sender: FDA-Public Use
  Company Number: 163-20785-12123465

PATIENT
  Age: 86 Year
  Sex: Female

DRUGS (3)
  1. THALOMID [Suspect]
     Indication: PLASMA CELL MYELOMA
     Route: 048
     Dates: start: 20120119
  2. DIURETICS (DIURETICS) [Concomitant]
  3. TRANSFUSIONS [Concomitant]

REACTIONS (3)
  - Haemoglobin decreased [None]
  - Cardiac failure congestive [None]
  - Oedema peripheral [None]
